FAERS Safety Report 7855344-8 (Version None)
Quarter: 2011Q4

REPORT INFORMATION
  Report Type: 
  Country: None (occurrence: None)
  Receive Date: 20111026
  Receipt Date: 20111018
  Transmission Date: 20120403
  Serious: No
  Sender: FDA-Public Use
  Company Number: CA-ALLERGAN-1110546US

PATIENT
  Age: 38 Year
  Sex: Male

DRUGS (3)
  1. BOTOX COSMETIC [Suspect]
     Dosage: 54 UNITS, SINGLE
     Route: 030
     Dates: start: 20110729, end: 20110729
  2. WARFARIN SODIUM [Concomitant]
     Indication: ANTICOAGULANT THERAPY
  3. BOTOX COSMETIC [Suspect]
     Indication: SKIN WRINKLING
     Dosage: 35 UNITS, SINGLE

REACTIONS (1)
  - HYPOAESTHESIA [None]
